FAERS Safety Report 5425913-3 (Version None)
Quarter: 2007Q3

REPORT INFORMATION
  Report Type: 
  Country: None (occurrence: None)
  Receive Date: 20070827
  Receipt Date: 20070816
  Transmission Date: 20080115
  Serious: Yes (Death, Other)
  Sender: FDA-Public Use
  Company Number: US-AMGEN-US239167

PATIENT
  Sex: Female

DRUGS (1)
  1. PROCRIT [Suspect]
     Indication: ANAEMIA
     Route: 065

REACTIONS (6)
  - CARDIAC ARREST [None]
  - CARDIAC PACEMAKER INSERTION [None]
  - CONFUSIONAL STATE [None]
  - DEATH [None]
  - GAIT DISTURBANCE [None]
  - VOMITING [None]
